FAERS Safety Report 21493391 (Version 3)
Quarter: 2023Q1

REPORT INFORMATION
  Report Type: Report from Study
  Country: US (occurrence: US)
  Receive Date: 20221021
  Receipt Date: 20230110
  Transmission Date: 20230417
  Serious: No
  Sender: FDA-Public Use
  Company Number: US-INCYTE CORPORATION-2022IN008795

PATIENT

DRUGS (3)
  1. JAKAFI [Suspect]
     Active Substance: RUXOLITINIB
     Indication: Myelofibrosis
     Dosage: 20 MILLIGRAM, BID TUES, THURS, SAT, SUN
     Route: 048
     Dates: start: 20190325
  2. JAKAFI [Suspect]
     Active Substance: RUXOLITINIB
     Dosage: 20 MILLIGRAM, QD ON MONDAY, WEDNESDAY, FRIDAY
     Route: 065
  3. JAKAFI [Suspect]
     Active Substance: RUXOLITINIB
     Dosage: 20 MILLIGRAM, QD ON MONDAY, WEDNESDAY, FRIDAY, BID ON TUESDAY, THURSDAY, SATURDAY, SUNDAY
     Route: 065

REACTIONS (4)
  - Bladder pain [Recovering/Resolving]
  - Night blindness [Unknown]
  - Cystitis interstitial [Unknown]
  - Red blood cell count decreased [Unknown]

NARRATIVE: CASE EVENT DATE: 20220802
